FAERS Safety Report 18927307 (Version 2)
Quarter: 2021Q2

REPORT INFORMATION
  Report Type: Spontaneous
  Country: FR (occurrence: FR)
  Receive Date: 20210223
  Receipt Date: 20210419
  Transmission Date: 20210717
  Serious: Yes (Hospitalization, Disabling, Other)
  Sender: FDA-Public Use
  Company Number: FR-SA-2021SA060731

PATIENT
  Age: 52 Year
  Sex: Female
  Weight: 49 kg

DRUGS (2)
  1. MYOZYME [Suspect]
     Active Substance: ALGLUCOSIDASE ALFA
     Indication: GLYCOGEN STORAGE DISEASE TYPE II
     Dosage: 20 MG/KG, QOW
     Route: 042
     Dates: start: 20060928
  2. UVEDOSE [Concomitant]
     Active Substance: CHOLECALCIFEROL
     Dosage: 100,000 1 AMP / 6 WEEKS
     Route: 048

REACTIONS (15)
  - Loss of personal independence in daily activities [Unknown]
  - Nausea [Recovering/Resolving]
  - Hepatic mass [Recovering/Resolving]
  - Hydrocholecystis [Recovering/Resolving]
  - Liver injury [Unknown]
  - Cholelithiasis [Recovering/Resolving]
  - Liver function test abnormal [Recovering/Resolving]
  - Haemangioma of liver [Recovering/Resolving]
  - Hepatic lesion [Recovering/Resolving]
  - Cough [Unknown]
  - Abdominal pain upper [Recovered/Resolved]
  - Abdominal pain [Recovered/Resolved]
  - Obstructive pancreatitis [Recovering/Resolving]
  - Scar [Recovering/Resolving]
  - Muscular weakness [Unknown]

NARRATIVE: CASE EVENT DATE: 2020
